FAERS Safety Report 6611684-1 (Version None)
Quarter: 2010Q1

REPORT INFORMATION
  Report Type: 
  Country: None (occurrence: None)
  Receive Date: 20100303
  Receipt Date: 20100222
  Transmission Date: 20100710
  Serious: Yes (Other)
  Sender: FDA-Public Use
  Company Number: JP-JNJFOC-20091108192

PATIENT
  Sex: Male

DRUGS (6)
  1. TOPINA [Suspect]
     Indication: EPILEPSY
     Route: 048
  2. TOPINA [Suspect]
     Route: 048
  3. TOPINA [Suspect]
     Route: 048
  4. ALEVIATIN [Concomitant]
     Route: 048
  5. HYDANTOL [Concomitant]
     Route: 048
  6. DEPACON [Concomitant]
     Route: 048

REACTIONS (1)
  - STATUS EPILEPTICUS [None]
